FAERS Safety Report 4413273-6 (Version None)
Quarter: 2004Q3

REPORT INFORMATION
  Report Type: 
  Country: None (occurrence: None)
  Receive Date: 20040802
  Receipt Date: 20040723
  Transmission Date: 20050211
  Serious: Yes (Hospitalization)
  Sender: FDA-Public Use
  Company Number: 200417276GDDC

PATIENT
  Age: 18 Year
  Sex: Male

DRUGS (2)
  1. KETEK [Suspect]
     Indication: PYREXIA
     Route: 048
  2. PARACETAMOL [Concomitant]
     Indication: PYREXIA
     Dosage: DOSE: UNK

REACTIONS (9)
  - ASTHENIA [None]
  - COUGH [None]
  - HEADACHE [None]
  - MYALGIA [None]
  - NAUSEA [None]
  - NEPHRITIS INTERSTITIAL [None]
  - PYREXIA [None]
  - RENAL FAILURE ACUTE [None]
  - WHITE BLOOD CELL COUNT INCREASED [None]
